FAERS Safety Report 5712753-0 (Version None)
Quarter: 2008Q2

REPORT INFORMATION
  Report Type: 
  Country: None (occurrence: None)
  Receive Date: 20080422
  Receipt Date: 20080415
  Transmission Date: 20081010
  Serious: Yes (Other)
  Sender: FDA-Public Use
  Company Number: US-JNJFOC-20080205535

PATIENT
  Sex: Male
  Weight: 81.65 kg

DRUGS (4)
  1. LEVAQUIN [Suspect]
     Indication: SKIN INFECTION
     Route: 048
  2. LEVAQUIN [Suspect]
     Indication: LYMPHADENOPATHY
     Route: 048
  3. LEVAQUIN [Suspect]
     Indication: CELLULITIS
     Route: 048
  4. FLAGYL [Concomitant]
     Indication: DIARRHOEA
     Route: 065

REACTIONS (7)
  - ANXIETY [None]
  - CONFUSIONAL STATE [None]
  - DRUG ADMINISTRATION ERROR [None]
  - INSOMNIA [None]
  - PARANOIA [None]
  - RESTLESSNESS [None]
  - THINKING ABNORMAL [None]
